FAERS Safety Report 11783587 (Version 2)
Quarter: 2016Q2

REPORT INFORMATION
  Report Type: Report from Study
  Country: JP (occurrence: JP)
  Receive Date: 20151127
  Receipt Date: 20160520
  Transmission Date: 20160815
  Serious: Yes (Hospitalization, Other)
  Sender: FDA-Public Use
  Company Number: JP-OTSUKA-2015_014168

PATIENT

DRUGS (19)
  1. ALDACTONE A [Concomitant]
     Active Substance: SPIRONOLACTONE
     Dosage: 40 MG, DAILY DOSE
     Route: 048
     Dates: start: 20150313
  2. AMINOLEBAN EN POWDER [Concomitant]
     Active Substance: AMINO ACIDS
     Indication: PRODUCT USED FOR UNKNOWN INDICATION
     Dosage: 150 G, DAILY DOSE
     Route: 048
  3. AMINOLEBAN [Concomitant]
     Active Substance: AMINO ACIDS
     Indication: PRODUCT USED FOR UNKNOWN INDICATION
     Dosage: 1000 ML, DAILY DOSE
     Route: 041
     Dates: start: 20150208, end: 20150212
  4. AMINOLEBAN [Concomitant]
     Active Substance: AMINO ACIDS
     Dosage: 500 ML, DAILY DOSE
     Route: 041
     Dates: start: 20150305, end: 20150307
  5. FERROSTEC [Concomitant]
     Active Substance: SODIUM FERROUS CITRATE
     Indication: PRODUCT USED FOR UNKNOWN INDICATION
     Dosage: 100 MG, DAILY DOSE
     Route: 048
     Dates: end: 20150228
  6. PRIMPERAN [Concomitant]
     Active Substance: METOCLOPRAMIDE HYDROCHLORIDE
     Indication: PROPHYLAXIS
     Dosage: 10 MG, DAILY DOSE
     Route: 042
     Dates: start: 20150208, end: 20150216
  7. AMINOLEBAN [Concomitant]
     Active Substance: AMINO ACIDS
     Dosage: 500 ML, DAILY DOSE
     Route: 041
     Dates: start: 20150213, end: 20150215
  8. AMINOLEBAN [Concomitant]
     Active Substance: AMINO ACIDS
     Dosage: 500 ML, DAILY DOSE
     Route: 041
     Dates: start: 20150227, end: 20150301
  9. LANSOPRAZOLE. [Concomitant]
     Active Substance: LANSOPRAZOLE
     Indication: PROPHYLAXIS
     Dosage: 15 MG, DAILY DOSE
     Route: 048
     Dates: start: 20150129
  10. TOLVAPTAN [Suspect]
     Active Substance: TOLVAPTAN
     Indication: FLUID RETENTION
     Dosage: 7.5 MG, QD (IN THE MORNING)
     Route: 048
     Dates: start: 20150129, end: 20150512
  11. AMINOLEBAN [Concomitant]
     Active Substance: AMINO ACIDS
     Dosage: 500 ML, DAILY DOSE
     Route: 041
     Dates: start: 20150221, end: 20150222
  12. PANTHENOL [Concomitant]
     Active Substance: PANTHENOL
     Indication: PROPHYLAXIS
     Dosage: 1000 MG, DAILY DOSE
     Route: 042
     Dates: start: 20150208, end: 20150216
  13. AMINOLEBAN [Concomitant]
     Active Substance: AMINO ACIDS
     Indication: HEPATIC ENCEPHALOPATHY
     Dosage: 1000 ML, DAILY DOSE
     Route: 041
     Dates: start: 20150219, end: 20150220
  14. AMINOLEBAN [Concomitant]
     Active Substance: AMINO ACIDS
     Dosage: 500 ML, DAILY DOSE
     Route: 041
     Dates: start: 20150309, end: 20150317
  15. ALDACTONE A [Concomitant]
     Active Substance: SPIRONOLACTONE
     Indication: FLUID RETENTION
     Dosage: 25 MG, DAILY DOSE
     Route: 048
     Dates: end: 20150312
  16. SENNOSIDE A+B CALCIUM [Concomitant]
     Active Substance: SENNOSIDES A AND B
     Indication: PROPHYLAXIS
     Dosage: 12 MG, DAILY DOSE
     Route: 048
     Dates: start: 20150202
  17. FUROSEMIDE. [Concomitant]
     Active Substance: FUROSEMIDE
     Indication: FLUID RETENTION
     Dosage: 20 MG, DAILY DOSE
     Route: 048
     Dates: end: 20150312
  18. FUROSEMIDE. [Concomitant]
     Active Substance: FUROSEMIDE
     Dosage: 40 MG, DAILY DOSE
     Route: 048
     Dates: start: 20150313
  19. AMITIZA [Concomitant]
     Active Substance: LUBIPROSTONE
     Indication: PROPHYLAXIS
     Dosage: 48 ?G, DAILY DOSE
     Route: 048
     Dates: start: 20150208

REACTIONS (1)
  - Hepatic encephalopathy [Recovering/Resolving]

NARRATIVE: CASE EVENT DATE: 20150219
